FAERS Safety Report 18235974 (Version 1)
Quarter: 2020Q3

REPORT INFORMATION
  Report Type: Spontaneous
  Country: US (occurrence: US)
  Receive Date: 20200905
  Receipt Date: 20200905
  Transmission Date: 20201103
  Serious: No
  Sender: FDA-Public Use
  Company Number: US-TEVA-2020-US-1825412

PATIENT
  Sex: Female

DRUGS (7)
  1. LORATADINE. [Concomitant]
     Active Substance: LORATADINE
  2. MONTELUKAST [Concomitant]
     Active Substance: MONTELUKAST SODIUM
  3. IBUPROFEN. [Concomitant]
     Active Substance: IBUPROFEN
  4. ASPIRIN. [Concomitant]
     Active Substance: ASPIRIN
  5. HYDROCHLOROTHIAZIDE. [Concomitant]
     Active Substance: HYDROCHLOROTHIAZIDE
  6. COPAXONE [Suspect]
     Active Substance: GLATIRAMER ACETATE
     Indication: MULTIPLE SCLEROSIS
     Dosage: 20 MILLIGRAM DAILY;
     Route: 058
     Dates: start: 20150624
  7. ESTRADIOL. [Concomitant]
     Active Substance: ESTRADIOL

REACTIONS (1)
  - Animal bite [Unknown]
